FAERS Safety Report 14243274 (Version 1)
Quarter: 2017Q4

REPORT INFORMATION
  Report Type: Spontaneous
  Country: US (occurrence: US)
  Receive Date: 20171201
  Receipt Date: 20171201
  Transmission Date: 20180321
  Serious: No
  Sender: FDA-Public Use
  Company Number: US-TEVA-802074ACC

PATIENT
  Sex: Female

DRUGS (1)
  1. MUPIROCIN. [Suspect]
     Active Substance: MUPIROCIN
     Indication: INFECTION
     Dosage: 6 PERCENT DAILY;
     Dates: start: 20170814

REACTIONS (3)
  - Pain [Unknown]
  - Incorrect drug administration duration [Unknown]
  - Drug effect incomplete [Unknown]
